FAERS Safety Report 8976228 (Version 1)
Quarter: 2012Q4

REPORT INFORMATION
  Report Type: 
  Country: US (occurrence: US)
  Receive Date: 20121220
  Receipt Date: 20121220
  Transmission Date: 20130627
  Serious: No
  Sender: FDA-Public Use
  Company Number: US-ASTRAZENECA-2011SE11052

PATIENT
  Age: 40 Year
  Sex: Female

DRUGS (3)
  1. NEXIUM [Suspect]
     Route: 048
  2. TOPROL XL [Suspect]
     Route: 048
  3. METOPROLOL [Suspect]
     Route: 048

REACTIONS (4)
  - Adverse event [Unknown]
  - Weight decreased [Unknown]
  - Palpitations [Unknown]
  - Hypotension [Unknown]
